FAERS Safety Report 5015947-5 (Version None)
Quarter: 2006Q2

REPORT INFORMATION
  Report Type: 
  Country: None (occurrence: None)
  Receive Date: 20060531
  Receipt Date: 20060531
  Transmission Date: 20061013
  Serious: No
  Sender: FDA-Public Use
  Company Number: None

PATIENT
  Age: 57 Year
  Sex: Male
  Weight: 79 kg

DRUGS (1)
  1. ARANESP [Suspect]
     Dosage: 200 MG SQ
     Dates: start: 20060525

REACTIONS (1)
  - MYOCARDIAL INFARCTION [None]
